FAERS Safety Report 12056830 (Version 2)
Quarter: 2016Q1

REPORT INFORMATION
  Report Type: Spontaneous
  Country: US (occurrence: US)
  Receive Date: 20160209
  Receipt Date: 20160301
  Transmission Date: 20160526
  Serious: Yes (Hospitalization)
  Sender: FDA-Public Use
  Company Number: US-INSYS THERAPEUTICS, INC-INS201601-000057

PATIENT
  Age: 56 Year
  Sex: Male

DRUGS (2)
  1. SUBSYS [Suspect]
     Active Substance: FENTANYL
     Indication: PAIN
     Route: 060
     Dates: start: 20151023
  2. SUBSYS [Suspect]
     Active Substance: FENTANYL

REACTIONS (4)
  - Pneumonia [Unknown]
  - Asthenia [Unknown]
  - Off label use [Unknown]
  - Tachycardia [Unknown]

NARRATIVE: CASE EVENT DATE: 20160126
